FAERS Safety Report 5168879-6 (Version None)
Quarter: 2006Q4

REPORT INFORMATION
  Report Type: 
  Country: None (occurrence: None)
  Receive Date: 20061211
  Receipt Date: 20061129
  Transmission Date: 20070319
  Serious: Yes (Hospitalization)
  Sender: FDA-Public Use
  Company Number: PHHO2006CL20241

PATIENT
  Sex: Female

DRUGS (1)
  1. ZELMAC / HTF 919A [Suspect]
     Indication: IRRITABLE BOWEL SYNDROME
     Dosage: 6 MG, BID
     Route: 048
     Dates: start: 20061001

REACTIONS (5)
  - DIARRHOEA [None]
  - DIVERTICULECTOMY [None]
  - MALAISE [None]
  - POSTOPERATIVE INFECTION [None]
  - PYREXIA [None]
